FAERS Safety Report 14313529 (Version 1)
Quarter: 2017Q4

REPORT INFORMATION
  Report Type: Spontaneous
  Country: IE (occurrence: IE)
  Receive Date: 20171221
  Receipt Date: 20171221
  Transmission Date: 20180321
  Serious: Yes (Life-Threatening, Hospitalization)
  Sender: FDA-Public Use
  Company Number: IE-AUROBINDO-AUR-APL-2017-46382

PATIENT
  Age: 35 Year
  Sex: Female
  Weight: 91 kg

DRUGS (13)
  1. LANTUS [Suspect]
     Active Substance: INSULIN GLARGINE
     Dosage: 46 UNK, 1 PER DAY
  2. FOLIC ACID. [Concomitant]
     Active Substance: FOLIC ACID
     Dosage: ()
     Route: 065
     Dates: start: 20170323
  3. LANTUS [Suspect]
     Active Substance: INSULIN GLARGINE
     Dosage: 42 UNK, 1 PER DAY
  4. LANTUS [Suspect]
     Active Substance: INSULIN GLARGINE
     Dosage: 40 IU, 1 PER DAY
     Route: 058
     Dates: start: 20021016
  5. HUMALOG [Suspect]
     Active Substance: INSULIN LISPRO
     Indication: TYPE 1 DIABETES MELLITUS
     Dosage: 90 IU, 1 PER DAY
     Route: 058
  6. L-THYROXINE                        /00068001/ [Concomitant]
     Active Substance: LEVOTHYROXINE
     Dosage: ()
     Route: 065
     Dates: start: 20170406
  7. HUMALOG [Suspect]
     Active Substance: INSULIN LISPRO
     Dosage: 86 IU, 1 PER DAY
     Route: 058
  8. SERTRALINE [Concomitant]
     Active Substance: SERTRALINE HYDROCHLORIDE
     Dosage: ()
     Route: 065
     Dates: start: 2000
  9. LANTUS [Suspect]
     Active Substance: INSULIN GLARGINE
     Indication: TYPE 1 DIABETES MELLITUS
     Dosage: 90 IU, 1 PER DAY
     Route: 058
  10. METFORMIN [Suspect]
     Active Substance: METFORMIN HYDROCHLORIDE
     Indication: TYPE 1 DIABETES MELLITUS
     Dosage: 1000 MG, UNK
     Route: 065
     Dates: start: 20150408
  11. LYRICA [Concomitant]
     Active Substance: PREGABALIN
     Dosage: ()
     Route: 065
     Dates: start: 20120907
  12. HUMALOG [Suspect]
     Active Substance: INSULIN LISPRO
     Dosage: 72 IU, 1 PER DAY
     Route: 058
     Dates: start: 20021016
  13. AMITRIPTYLINE [Concomitant]
     Active Substance: AMITRIPTYLINE
     Dosage: ()
     Route: 065
     Dates: start: 20120907

REACTIONS (8)
  - Diabetes mellitus inadequate control [Recovered/Resolved]
  - Product use issue [Unknown]
  - Diabetes mellitus inadequate control [Recovered/Resolved]
  - Hypoglycaemia [Recovered/Resolved]
  - Postpartum haemorrhage [Recovered/Resolved]
  - Exposure during pregnancy [Unknown]
  - Caesarean section [Recovered/Resolved]
  - Diabetes mellitus inadequate control [Recovered/Resolved]

NARRATIVE: CASE EVENT DATE: 20170420
